FAERS Safety Report 7520486-3 (Version None)
Quarter: 2011Q2

REPORT INFORMATION
  Report Type: 
  Country: None (occurrence: None)
  Receive Date: 20110602
  Receipt Date: 20110525
  Transmission Date: 20111010
  Serious: Yes (Hospitalization)
  Sender: FDA-Public Use
  Company Number: US-BAXTER-2011BH015754

PATIENT
  Sex: Female

DRUGS (1)
  1. DIANEAL [Suspect]
     Indication: PERITONEAL DIALYSIS
     Route: 033

REACTIONS (5)
  - DYSPHAGIA [None]
  - IMPAIRED GASTRIC EMPTYING [None]
  - LOSS OF CONSCIOUSNESS [None]
  - VOMITING [None]
  - ORTHOSTATIC HYPOTENSION [None]
